FAERS Safety Report 12650267 (Version 1)
Quarter: 2016Q3

REPORT INFORMATION
  Report Type: Spontaneous
  Country: US (occurrence: US)
  Receive Date: 20160813
  Receipt Date: 20160813
  Transmission Date: 20161109
  Serious: Yes (Other)
  Sender: FDA-Public Use
  Company Number: PHEH2016US020055

PATIENT
  Sex: Female

DRUGS (2)
  1. EXFORGE [Suspect]
     Active Substance: AMLODIPINE BESYLATE\VALSARTAN
     Indication: PRODUCT USED FOR UNKNOWN INDICATION
     Dosage: (160 MG VALSARTAN, 5 MG AMLODIPINE)
     Route: 048
  2. EXFORGE [Suspect]
     Active Substance: AMLODIPINE BESYLATE\VALSARTAN
     Dosage: (160 MG VALSARTAN, 10 MG AMLODIPINE)UNK
     Route: 048

REACTIONS (4)
  - Cerebrovascular accident [Unknown]
  - Alopecia [Unknown]
  - Hypertension [Unknown]
  - Urticaria [Unknown]
